FAERS Safety Report 5718416-X (Version None)
Quarter: 2008Q2

REPORT INFORMATION
  Report Type: 
  Country: None (occurrence: None)
  Receive Date: 20080425
  Receipt Date: 20080415
  Transmission Date: 20081010
  Serious: Yes (Other)
  Sender: FDA-Public Use
  Company Number: US-ABBOTT-08P-163-0447685-00

PATIENT
  Sex: Female
  Weight: 50.394 kg

DRUGS (6)
  1. HUMIRA [Suspect]
     Indication: CROHN'S DISEASE
     Route: 058
     Dates: start: 20071201
  2. HUMIRA [Suspect]
     Route: 058
  3. HUMIRA [Suspect]
     Route: 058
     Dates: end: 20080120
  4. HUMIRA [Suspect]
     Route: 058
     Dates: start: 20080127
  5. MESALAMINE [Concomitant]
     Indication: CROHN'S DISEASE
     Route: 048
  6. LANSOPRAZOLE [Concomitant]
     Indication: GASTROOESOPHAGEAL REFLUX DISEASE
     Route: 048

REACTIONS (8)
  - ABDOMINAL PAIN [None]
  - ABDOMINAL PAIN UPPER [None]
  - ACCIDENTAL NEEDLE STICK [None]
  - ANOREXIA [None]
  - DIARRHOEA [None]
  - DRUG INEFFECTIVE [None]
  - MEDICATION ERROR [None]
  - PERIRECTAL ABSCESS [None]
